FAERS Safety Report 20878106 (Version 3)
Quarter: 2023Q2

REPORT INFORMATION
  Report Type: Report from Study
  Country: GB (occurrence: GB)
  Receive Date: 20220526
  Receipt Date: 20230519
  Transmission Date: 20230721
  Serious: Yes (Hospitalization, Other)
  Sender: FDA-Public Use
  Company Number: GB-IPSEN Group, Research and Development-2021-15833

PATIENT
  Age: 44 Year
  Sex: Female

DRUGS (1)
  1. LANREOTIDE ACETATE [Suspect]
     Active Substance: LANREOTIDE ACETATE
     Indication: Neuroendocrine tumour
     Dosage: 120MG/0.5ML
     Route: 058

REACTIONS (13)
  - Malaise [Unknown]
  - Body temperature increased [Unknown]
  - Infection [Unknown]
  - Pulmonary oedema [Unknown]
  - Pneumonia [Unknown]
  - Neutropenia [Not Recovered/Not Resolved]
  - Blood sodium decreased [Unknown]
  - Hospitalisation [Unknown]
  - Pain in extremity [Unknown]
  - Diarrhoea [Not Recovered/Not Resolved]
  - Peripheral swelling [Unknown]
  - COVID-19 [Not Recovered/Not Resolved]
  - Off label use [Unknown]

NARRATIVE: CASE EVENT DATE: 20220101
